FAERS Safety Report 10538187 (Version 11)
Quarter: 2015Q2

REPORT INFORMATION
  Report Type: Spontaneous
  Country: CA (occurrence: CA)
  Receive Date: 20141023
  Receipt Date: 20150406
  Transmission Date: 20150821
  Serious: Yes (Other)
  Sender: FDA-Public Use
  Company Number: CA-SA-2013SA135185

PATIENT
  Age: 67 Year
  Sex: Female

DRUGS (5)
  1. TAXOTERE [Suspect]
     Active Substance: DOCETAXEL
     Indication: BREAST CANCER METASTATIC
     Route: 042
  2. TYLENOL [Suspect]
     Active Substance: ACETAMINOPHEN
     Indication: TOOTHACHE
     Route: 065
  3. HERCEPTIN [Suspect]
     Active Substance: TRASTUZUMAB
     Indication: BREAST CANCER METASTATIC
     Dosage: STOP DATE- 2013
     Route: 042
     Dates: start: 201308
  4. PERJETA [Suspect]
     Active Substance: PERTUZUMAB
     Indication: BREAST CANCER METASTATIC
     Dosage: FORM: INFUSION
     Route: 042
     Dates: start: 20130904
  5. PERJETA [Suspect]
     Active Substance: PERTUZUMAB
     Indication: BREAST CANCER METASTATIC
     Dosage: FORM: INFUSION
     Route: 042
     Dates: start: 20130924

REACTIONS (27)
  - Depression [Unknown]
  - Speech disorder [Unknown]
  - Blood pressure increased [Unknown]
  - Vomiting [Unknown]
  - Malaise [Unknown]
  - Urogenital prolapse [Recovered/Resolved]
  - Lacrimation increased [Unknown]
  - Diarrhoea [Unknown]
  - Toothache [Not Recovered/Not Resolved]
  - Abdominal discomfort [Not Recovered/Not Resolved]
  - Diarrhoea [Unknown]
  - Memory impairment [Unknown]
  - Hypotension [Unknown]
  - Aura [Unknown]
  - Thinking abnormal [Unknown]
  - Tooth infection [Recovered/Resolved]
  - Influenza [Unknown]
  - Oxygen saturation decreased [Unknown]
  - Laryngitis [Recovering/Resolving]
  - Dysgeusia [Unknown]
  - Migraine [Unknown]
  - Mean platelet volume decreased [Unknown]
  - Muscular weakness [Unknown]
  - Stomatitis [Not Recovered/Not Resolved]
  - Pruritus [Unknown]
  - Dyspnoea exertional [Unknown]
  - Palpitations [Unknown]

NARRATIVE: CASE EVENT DATE: 2013
